FAERS Safety Report 8376650-7 (Version None)
Quarter: 2012Q2

REPORT INFORMATION
  Report Type: 
  Country: None (occurrence: None)
  Receive Date: 20120518
  Receipt Date: 20120508
  Transmission Date: 20120825
  Serious: Yes (Other)
  Sender: FDA-Public Use
  Company Number: TPA2012A02680

PATIENT

DRUGS (1)
  1. PIOGLITAZONE HYDROCHLORIDE [Suspect]
     Indication: INSULIN RESISTANCE

REACTIONS (1)
  - PTERYGIUM [None]
